FAERS Safety Report 9584732 (Version 1)
Quarter: 2013Q4

REPORT INFORMATION
  Report Type: Spontaneous
  Country: US (occurrence: US)
  Receive Date: 20131002
  Receipt Date: 20131002
  Transmission Date: 20140711
  Serious: No
  Sender: FDA-Public Use
  Company Number: US-AMGEN-USASP2013054987

PATIENT
  Age: 63 Year
  Sex: Female
  Weight: 90.7 kg

DRUGS (9)
  1. ENBREL [Suspect]
     Indication: PRODUCT USED FOR UNKNOWN INDICATION
     Dosage: 50 MG, QWK
     Route: 058
  2. ENALAPRIL [Concomitant]
     Dosage: 10 MG, UNK
  3. ATENOLOL [Concomitant]
     Dosage: 100 MG, UNK
  4. METFORMIN [Concomitant]
     Dosage: 500 MG, UNK
  5. SIMVASTATIN [Concomitant]
     Dosage: 20 MG, UNK
  6. ASPIRIN [Concomitant]
     Dosage: 81 MG CHW, UNK
  7. LEVOTHYROXIN [Concomitant]
     Dosage: 75 MUG, UNK
  8. PROZAC [Concomitant]
     Dosage: 10 MG, UNK
  9. MULTIVITAMINS, PLAIN [Concomitant]
     Dosage: UNK

REACTIONS (2)
  - Drug effect incomplete [Unknown]
  - Psoriasis [Unknown]
